FAERS Safety Report 18137454 (Version 5)
Quarter: 2021Q3

REPORT INFORMATION
  Report Type: Spontaneous
  Country: DE (occurrence: DE)
  Receive Date: 20200812
  Receipt Date: 20210913
  Transmission Date: 20211014
  Serious: Yes (Other)
  Sender: FDA-Public Use
  Company Number: DE-SA-2020SA208335

PATIENT
  Sex: Male

DRUGS (6)
  1. ELOCTA [Suspect]
     Active Substance: EFMOROCTOCOG ALFA
     Dosage: 3000 IU (EXTRA DOSES)
     Route: 065
     Dates: start: 20200705, end: 20200706
  2. ELOCTA [Suspect]
     Active Substance: EFMOROCTOCOG ALFA
     Indication: PROPHYLAXIS
     Dosage: 3000 IU
     Route: 065
     Dates: end: 20200705
  3. ELOCTA [Suspect]
     Active Substance: EFMOROCTOCOG ALFA
     Dosage: 3000 IU (EXTRA DOSES)
     Route: 065
     Dates: start: 20200705, end: 20200706
  4. ELOCTA [Suspect]
     Active Substance: EFMOROCTOCOG ALFA
     Dosage: 3000 IU
     Route: 065
     Dates: start: 20200708
  5. ELOCTA [Suspect]
     Active Substance: EFMOROCTOCOG ALFA
     Indication: PROPHYLAXIS
     Dosage: 3000 IU
     Route: 065
     Dates: end: 20200705
  6. ELOCTA [Suspect]
     Active Substance: EFMOROCTOCOG ALFA
     Dosage: 3000 IU
     Route: 065
     Dates: start: 20200708

REACTIONS (4)
  - Traumatic haemorrhage [Recovered/Resolved]
  - Haemarthrosis [Recovered/Resolved]
  - Arthralgia [Recovered/Resolved]
  - Limb injury [Unknown]

NARRATIVE: CASE EVENT DATE: 20200705
